FAERS Safety Report 8781389 (Version 1)
Quarter: 2012Q4

REPORT INFORMATION
  Report Type: 
  Country: US (occurrence: US)
  Receive Date: 20120913
  Receipt Date: 20120913
  Transmission Date: 20130627
  Serious: No
  Sender: FDA-Public Use
  Company Number: US-VERTEX PHARMACEUTICAL INC.-AE-2012-007418

PATIENT

DRUGS (7)
  1. INCIVEK [Suspect]
     Indication: HEPATITIS C
     Route: 048
     Dates: start: 20120514
  2. RIBAVIRIN [Concomitant]
     Indication: HEPATITIS C
     Route: 048
     Dates: start: 20120514
  3. PEGASYS [Concomitant]
     Indication: HEPATITIS C
     Route: 058
     Dates: start: 20120513
  4. LISINOPRIL-HCTZ [Concomitant]
     Indication: HYPERTENSION
     Route: 048
  5. TRAMADOL [Concomitant]
     Indication: ARTHRALGIA
     Route: 048
  6. MVI [Concomitant]
  7. MILK THISTLE [Concomitant]

REACTIONS (7)
  - Pain [Not Recovered/Not Resolved]
  - Depression [Not Recovered/Not Resolved]
  - Eye pruritus [Recovered/Resolved]
  - Throat irritation [Not Recovered/Not Resolved]
  - Chapped lips [Unknown]
  - Rash [Not Recovered/Not Resolved]
  - Dysgeusia [Not Recovered/Not Resolved]
